FAERS Safety Report 7166240-6 (Version None)
Quarter: 2010Q4

REPORT INFORMATION
  Report Type: 
  Country: None (occurrence: None)
  Receive Date: 20101202
  Receipt Date: 20101117
  Transmission Date: 20110411
  Serious: Yes (Disabling)
  Sender: FDA-Public Use
  Company Number: 1000017507

PATIENT
  Age: 58 Year
  Sex: Female
  Weight: 81 kg

DRUGS (5)
  1. ESCITALOPRAM OXALATE [Suspect]
     Indication: DEPRESSION
     Dosage: 10 MG (10 MG,1 IN 1 D),ORAL
     Route: 048
  2. CARMEN (LERCANIDIPINE) (LERCANIDIPINE) [Concomitant]
  3. AMILORETIK (AMILORIDE, HYDROCHLOROTHIAZIDE) (AMILORIDE, HYDROCHLOROTHI [Concomitant]
  4. HORMONGEL (ESTRADIOL) (ESTRADIOL) [Concomitant]
  5. DOXEPIN (DOXEPIN) (DOXEPIN) [Concomitant]

REACTIONS (1)
  - LIPOEDEMA [None]
